FAERS Safety Report 9837492 (Version 7)
Quarter: 2015Q4

REPORT INFORMATION
  Report Type: Spontaneous
  Country: DK (occurrence: DK)
  Receive Date: 20140123
  Receipt Date: 20151012
  Transmission Date: 20160305
  Serious: Yes (Death, Other)
  Sender: FDA-Public Use
  Company Number: DK-JNJFOC-20140109847

PATIENT
  Age: 81 Year
  Sex: Female
  Weight: 48 kg

DRUGS (1)
  1. REMICADE [Suspect]
     Active Substance: INFLIXIMAB
     Indication: RHEUMATOID ARTHRITIS
     Dosage: DOSE NUMBER: 130
     Route: 042
     Dates: start: 20130326, end: 20131024

REACTIONS (2)
  - Lung adenocarcinoma [Not Recovered/Not Resolved]
  - Death [Fatal]

NARRATIVE: CASE EVENT DATE: 201306
